FAERS Safety Report 24404657 (Version 1)
Quarter: 2024Q4

REPORT INFORMATION
  Report Type: Report from Study
  Country: US (occurrence: US)
  Receive Date: 20241007
  Receipt Date: 20241007
  Transmission Date: 20250114
  Serious: No
  Sender: ROCHE
  Company Number: US-ROCHE-3516086

PATIENT
  Sex: Male

DRUGS (1)
  1. GAZYVA [Suspect]
     Active Substance: OBINUTUZUMAB
     Indication: Follicular lymphoma
     Dosage: MOST RECENT DOSE WAS IN JULY/2002, FINISHED MAINTENANCE TREATMENT- JULY/2023, MAINTAINANCE TREATMENT
     Route: 065

REACTIONS (5)
  - Feeling hot [Unknown]
  - Body temperature increased [Unknown]
  - Erythema [Unknown]
  - Palpitations [Unknown]
  - Pruritus [Unknown]
